FAERS Safety Report 16193117 (Version 1)
Quarter: 2019Q2

REPORT INFORMATION
  Report Type: Spontaneous
  Country: FR (occurrence: FR)
  Receive Date: 20190413
  Receipt Date: 20190413
  Transmission Date: 20190711
  Serious: Yes (Death)
  Sender: FDA-Public Use
  Company Number: FR-ZYDUS-035679

PATIENT
  Age: 63 Year
  Sex: Male
  Weight: 122 kg

DRUGS (9)
  1. GLICLAZIDE [Suspect]
     Active Substance: GLICLAZIDE
     Indication: TYPE 2 DIABETES MELLITUS
     Route: 048
     Dates: end: 20190306
  2. FUROSEMIDE. [Suspect]
     Active Substance: FUROSEMIDE
     Indication: CARDIOMYOPATHY
     Dosage: 500 MG, SCORED TABLET
     Route: 048
     Dates: start: 201902, end: 20190306
  3. APIXABAN [Suspect]
     Active Substance: APIXABAN
     Indication: CARDIOMYOPATHY
     Dosage: ()
     Route: 048
     Dates: start: 201902, end: 20190306
  4. ATORVASTATIN [Suspect]
     Active Substance: ATORVASTATIN
     Indication: DYSLIPIDAEMIA
     Dosage: 20 MG FILM-COATED TABLETS
     Route: 048
     Dates: end: 20190307
  5. PANTOPRAZOLE [Suspect]
     Active Substance: PANTOPRAZOLE
     Indication: PRODUCT USED FOR UNKNOWN INDICATION
     Dosage: ()
     Route: 048
     Dates: start: 201902, end: 20190306
  6. METFORMIN [Suspect]
     Active Substance: METFORMIN HYDROCHLORIDE
     Indication: TYPE 2 DIABETES MELLITUS
     Route: 048
     Dates: end: 20190306
  7. BISOPROLOL [Suspect]
     Active Substance: BISOPROLOL
     Indication: HYPERTENSION
     Route: 048
     Dates: end: 20190306
  8. SITAGLIPTIN + METFORMIN [Suspect]
     Active Substance: METFORMIN\SITAGLIPTIN
     Indication: TYPE 2 DIABETES MELLITUS
     Route: 048
     Dates: end: 20190306
  9. ALLOPURINOL. [Suspect]
     Active Substance: ALLOPURINOL
     Indication: GOUT
     Dosage: 200 MG TABLET
     Route: 048
     Dates: end: 20190306

REACTIONS (3)
  - Cardiogenic shock [Fatal]
  - Acute kidney injury [Fatal]
  - Lactic acidosis [Fatal]

NARRATIVE: CASE EVENT DATE: 20190307
